FAERS Safety Report 16130011 (Version 2)
Quarter: 2019Q2

REPORT INFORMATION
  Report Type: Report from Study
  Country: US (occurrence: US)
  Receive Date: 20190328
  Receipt Date: 20190425
  Transmission Date: 20190711
  Serious: Yes (Other)
  Sender: FDA-Public Use
  Company Number: US-BAYER-2019-041969

PATIENT
  Age: 68 Year
  Sex: Male
  Weight: 76.64 kg

DRUGS (11)
  1. HYDROCHLOROTHIAZIDE. [Concomitant]
     Active Substance: HYDROCHLOROTHIAZIDE
     Dosage: 25 MG
  2. STIVARGA [Suspect]
     Active Substance: REGORAFENIB
     Indication: COLON CANCER
     Dosage: DAILY DOSE 80 MG (FOR 21 DAYS)
     Route: 048
     Dates: start: 2019, end: 2019
  3. BENZONATATE. [Concomitant]
     Active Substance: BENZONATATE
  4. VITAMIN D3 [Concomitant]
     Active Substance: CHOLECALCIFEROL
     Dosage: 1000 UN
  5. POTASSIUM GLUCONATE [Concomitant]
     Active Substance: POTASSIUM GLUCONATE
     Dosage: UNK
  6. OXYCODONE HYDROCHLORIDE. [Concomitant]
     Active Substance: OXYCODONE HYDROCHLORIDE
  7. TAMSULOSIN [Concomitant]
     Active Substance: TAMSULOSIN
  8. STIVARGA [Suspect]
     Active Substance: REGORAFENIB
     Indication: COLORECTAL CANCER
     Dosage: DAILY DOSE 120 MG (3 TABLETS FOR 21 DAYS)
     Route: 048
     Dates: start: 20190218, end: 2019
  9. GABAPENTIN. [Concomitant]
     Active Substance: GABAPENTIN
  10. PANTOPRAZOLE SODIUM. [Concomitant]
     Active Substance: PANTOPRAZOLE SODIUM
  11. AMLODIPINE BESYLATE. [Concomitant]
     Active Substance: AMLODIPINE BESYLATE

REACTIONS (12)
  - Blister [None]
  - Gait disturbance [None]
  - Product dose omission [None]
  - Nail disorder [Unknown]
  - Drug ineffective [None]
  - Off label use [None]
  - Skin exfoliation [None]
  - Loss of personal independence in daily activities [None]
  - Erythema [None]
  - Dry skin [None]
  - Blister [Unknown]
  - Burning sensation [None]

NARRATIVE: CASE EVENT DATE: 201902
